FAERS Safety Report 11653907 (Version 1)
Quarter: 2015Q4

REPORT INFORMATION
  Report Type: Report from Study
  Country: US (occurrence: US)
  Receive Date: 20151022
  Receipt Date: 20151022
  Transmission Date: 20160304
  Serious: Yes (Other)
  Sender: FDA-Public Use
  Company Number: US-GILEAD-2015-0177959

PATIENT
  Age: 62 Year
  Sex: Female

DRUGS (3)
  1. LACTOSE [Concomitant]
     Active Substance: LACTOSE
     Indication: PRODUCT USED FOR UNKNOWN INDICATION
     Route: 065
  2. VITAMIN B [Concomitant]
     Active Substance: VITAMIN B
     Indication: PRODUCT USED FOR UNKNOWN INDICATION
     Dosage: UNK
     Route: 065
     Dates: start: 20151012
  3. LEDIPASVIR/SOFOSBUVIR [Suspect]
     Active Substance: LEDIPASVIR\SOFOSBUVIR
     Indication: HEPATITIS C
     Dosage: 1 DF, QD
     Route: 048
     Dates: start: 20150404, end: 20150919

REACTIONS (7)
  - Faeces discoloured [Unknown]
  - Diarrhoea [Unknown]
  - Malaise [Unknown]
  - Fatigue [Unknown]
  - Hepatic cirrhosis [Unknown]
  - Rectal discharge [Unknown]
  - Chromaturia [Unknown]

NARRATIVE: CASE EVENT DATE: 20151014
